FAERS Safety Report 5405846-9 (Version None)
Quarter: 2007Q3

REPORT INFORMATION
  Report Type: 
  Country: None (occurrence: None)
  Receive Date: 20070806
  Receipt Date: 20070719
  Transmission Date: 20080115
  Serious: Yes (Other)
  Sender: FDA-Public Use
  Company Number: US-JNJFOC-20070704815

PATIENT
  Age: 82 Year
  Sex: Male
  Weight: 91.63 kg

DRUGS (4)
  1. TYLENOL (CAPLET) [Suspect]
  2. TYLENOL (CAPLET) [Suspect]
     Indication: HEADACHE
  3. UNSPECIFIED MEDICATION [Concomitant]
     Indication: HYPERTENSION
  4. DEPAKOTE [Concomitant]
     Indication: CONVULSION

REACTIONS (1)
  - PNEUMONIA BACTERIAL [None]
